FAERS Safety Report 4565910-3 (Version None)
Quarter: 2005Q1

REPORT INFORMATION
  Report Type: 
  Country: None (occurrence: None)
  Receive Date: 20050128
  Receipt Date: 20050121
  Transmission Date: 20050727
  Serious: Yes (Other)
  Sender: FDA-Public Use
  Company Number: 200410461BCA

PATIENT
  Age: 66 Year
  Sex: Male

DRUGS (23)
  1. ASPIRIN [Suspect]
     Indication: CORONARY ARTERY DISEASE
     Dosage: 325 MG, TOTAL DAILY, ORAL
     Route: 048
     Dates: start: 20020419
  2. HEPARIN [Suspect]
     Dosage: INTRAVENOUS
     Route: 042
  3. PLAVIX [Suspect]
     Dosage: ORAL
     Route: 048
  4. ALTACE [Concomitant]
  5. AMIODARONE [Concomitant]
  6. ATENOLOL [Concomitant]
  7. ATROPINE [Concomitant]
  8. COLACE [Concomitant]
  9. DIGOXIN [Concomitant]
  10. FENTANYL [Concomitant]
  11. ISORDIL [Concomitant]
  12. K-LYTE   /CAN/ [Concomitant]
  13. LASIX [Concomitant]
  14. LIPITOR [Concomitant]
  15. METOPROLOL [Concomitant]
  16. MUCOMYST [Concomitant]
  17. NIPRIDE [Concomitant]
  18. NITRO-DUR [Concomitant]
  19. NITROGLYCERIN [Concomitant]
  20. PENTASPAN [Concomitant]
  21. PROPOFOL [Concomitant]
  22. PROTAMINE SULPHATE [Concomitant]
  23. XYLOCAINE [Concomitant]

REACTIONS (3)
  - DRUG INTERACTION [None]
  - HAEMOGLOBIN DECREASED [None]
  - POST PROCEDURAL COMPLICATION [None]
